FAERS Safety Report 20447532 (Version 1)
Quarter: 2022Q1

REPORT INFORMATION
  Report Type: Report from Study
  Country: US (occurrence: US)
  Receive Date: 20220209
  Receipt Date: 20220209
  Transmission Date: 20220423
  Serious: No
  Sender: FDA-Public Use
  Company Number: US-ORG100014127-2021001308

PATIENT
  Age: 56 Year
  Sex: Female

DRUGS (8)
  1. LYSODREN [Suspect]
     Active Substance: MITOTANE
     Dosage: 1 TAB BID
     Route: 048
     Dates: start: 20210904
  2. LYSODREN [Suspect]
     Active Substance: MITOTANE
     Dosage: 2 TAB BID
     Route: 048
     Dates: start: 20210904
  3. DICYCLOMINE [Concomitant]
     Active Substance: DICYCLOMINE HYDROCHLORIDE
  4. ONDANSETRON [Concomitant]
     Active Substance: ONDANSETRON
  5. PREDNISONE [Concomitant]
     Active Substance: PREDNISONE
  6. VALACYCLOVIR TAB 500MG [Concomitant]
  7. VITAMIN D2 TAB 2000UNIT [Concomitant]
  8. ZETIA [Concomitant]
     Active Substance: EZETIMIBE

REACTIONS (3)
  - Pollakiuria [Not Recovered/Not Resolved]
  - Depression [Not Recovered/Not Resolved]
  - Dizziness [Not Recovered/Not Resolved]

NARRATIVE: CASE EVENT DATE: 20211001
